FAERS Safety Report 8586278-1 (Version None)
Quarter: 2012Q3

REPORT INFORMATION
  Report Type: 
  Country: None (occurrence: None)
  Receive Date: 20120810
  Receipt Date: 19910611
  Transmission Date: 20120928
  Serious: Yes (Hospitalization)
  Sender: FDA-Public Use
  Company Number: US-ROCHE-1098268

PATIENT
  Age: 55 Year
  Sex: Male

DRUGS (3)
  1. STREPTOKINASE [Concomitant]
  2. HEPARIN [Concomitant]
  3. ACTIVASE [Suspect]
     Indication: ACUTE MYOCARDIAL INFARCTION

REACTIONS (1)
  - DYSPNOEA [None]
